FAERS Safety Report 5882195-6 (Version None)
Quarter: 2008Q3

REPORT INFORMATION
  Report Type: 
  Country: None (occurrence: None)
  Receive Date: 20080912
  Receipt Date: 20080724
  Transmission Date: 20090109
  Serious: No
  Sender: FDA-Public Use
  Company Number: US-ABBOTT-08P-163-0466281-00

PATIENT
  Sex: Female
  Weight: 91.36 kg

DRUGS (7)
  1. HUMIRA [Suspect]
     Indication: RHEUMATOID ARTHRITIS
     Route: 050
     Dates: start: 20080612
  2. FOLIC ACID [Concomitant]
     Indication: VITAMIN SUPPLEMENTATION
     Route: 048
  3. METHOTREXATE [Concomitant]
     Indication: RHEUMATOID ARTHRITIS
     Dosage: 9 PILLS EVERY SATURDAY
     Route: 048
  4. PREDNISONE TAB [Concomitant]
     Indication: INFLAMMATION
     Route: 048
  5. HYDROCODONE BITARTRATE [Concomitant]
     Indication: PAIN
     Dosage: UP TO 10 PILLS, 1 AM, 2 Q HS
     Route: 048
  6. OXYCODONE HCL [Concomitant]
     Indication: PAIN
     Dosage: DAILY PRN
     Route: 048
  7. CORRECTOL [Concomitant]
     Indication: CONSTIPATION
     Route: 048

REACTIONS (2)
  - PAIN [None]
  - RHEUMATOID FACTOR INCREASED [None]
